FAERS Safety Report 16143665 (Version 9)
Quarter: 2019Q4

REPORT INFORMATION
  Report Type: Report from Study
  Country: US (occurrence: US)
  Receive Date: 20190401
  Receipt Date: 20191114
  Transmission Date: 20200122
  Serious: Yes (Hospitalization, Other)
  Sender: FDA-Public Use
  Company Number: US-PFIZER INC-2019056885

PATIENT
  Age: 40 Year
  Sex: Female

DRUGS (21)
  1. ASPIRIN [ACETYLSALICYLIC ACID] [Concomitant]
     Active Substance: ASPIRIN
     Dosage: 1.5 TABLETS (121.5 MG TOTAL) BY MOUTH DAILY
     Route: 048
  2. VITAMIN D3 [Concomitant]
     Active Substance: CHOLECALCIFEROL
     Dosage: TAKE 1,000 UNITS BY MOUTH DAILY
     Route: 048
  3. FEMARA [Concomitant]
     Active Substance: LETROZOLE
     Dosage: TAKE 1 TABLET (2.5 MG TOTAL) BY MOUTH DAILY
     Route: 048
  4. LUPRON DEPOT [Concomitant]
     Active Substance: LEUPROLIDE ACETATE
     Dosage: INJECT 45 MG INTO THE MUSCLE ONCE
     Route: 030
  5. ATIVAN [Concomitant]
     Active Substance: LORAZEPAM
     Indication: ANXIETY
     Dosage: TAKE 0.5 MG BY MOUTH EVERY 6 (SIX) HOURS AS NEEDED FOR ANXIETY
     Route: 048
  6. OXYCODONE [Concomitant]
     Active Substance: OXYCODONE
     Indication: PAIN
     Dosage: TAKE 1 TABLET (5 MG TOTAL) BY MOUTH EVERY 4 (FOUR) HOURS AS NEEDED FOR MODERATE PAIN
     Route: 048
  7. VITAMIN D3 [Concomitant]
     Active Substance: CHOLECALCIFEROL
     Dosage: TAKE 400 UNITS BY MOUTH DAILY
     Route: 048
  8. ADVIL [IBUPROFEN] [Concomitant]
     Active Substance: IBUPROFEN
     Indication: PAIN
     Dosage: TAKE 3 TABLETS (600 MG TOTAL) BY MOUTH EVERY 6 (SIX) HOURS AS NEEDED FOR PAIN
     Route: 048
  9. XYLOCAINE [Concomitant]
     Active Substance: LIDOCAINE HYDROCHLORIDE
     Dosage: APPLY TOPICALLY 2 (TWO) TIMES A DAY
     Route: 061
  10. RETIN-A [Concomitant]
     Active Substance: TRETINOIN
     Dosage: 1 APPLICATION TOPICALLY NIGHTLY
     Route: 061
  11. MOTRIN [Concomitant]
     Active Substance: IBUPROFEN
     Indication: PAIN
  12. EMLA [Concomitant]
     Active Substance: LIDOCAINE\PRILOCAINE
     Indication: DISCOMFORT
     Dosage: 1 APPLICATION TOPICALLY AS NEEDED, TO THE DRAIN SITES FOR DISCOMFORT
     Route: 061
  13. MIRALAX [Concomitant]
     Active Substance: POLYETHYLENE GLYCOL 3350
     Dosage: 17 G BY MOUTH DAILY AS NEEDED
     Route: 048
  14. LETROZOLE. [Concomitant]
     Active Substance: LETROZOLE
     Indication: BREAST CANCER
     Dosage: 2.5 MG, 1X/DAY
     Route: 048
     Dates: start: 20180718, end: 20190208
  15. CEFAZOLIN [Suspect]
     Active Substance: CEFAZOLIN
     Indication: PROPHYLAXIS
     Dosage: 2 G, Q8H
     Route: 042
     Dates: start: 20190115, end: 20190116
  16. LETROZOLE. [Concomitant]
     Active Substance: LETROZOLE
     Dosage: 2.5 MG, 1X/DAY
     Route: 048
     Dates: start: 20190228
  17. TYLENOL [Concomitant]
     Active Substance: ACETAMINOPHEN
     Indication: PAIN
     Dosage: TAKE 2 TABLETS (650 MG TOTAL) BY MOUTH EVERY 4 (FOUR) HOURS AS NEEDED
     Route: 048
  18. TYLENOL [Concomitant]
     Active Substance: ACETAMINOPHEN
     Indication: PYREXIA
     Dosage: 650 MG CR TABLET, 1-2 TABLETS, EVERY 8 (EIGHT) HOURS AS NEEDED
     Route: 048
  19. NEURONTIN [Concomitant]
     Active Substance: GABAPENTIN
     Dosage: TAKE 3 CAPSULES (900 MG TOTAL) BY MOUTH NIGHTLY AS NEEDED (VASOMOTOR SYMPTOMS), DOSE CHANGE
     Route: 048
  20. PALBOCICLIB [Suspect]
     Active Substance: PALBOCICLIB
     Indication: BREAST CANCER
     Dosage: 125 MG, 1X/DAY
     Route: 048
     Dates: start: 20180808, end: 20190107
  21. BUPIVACAINE HCL [Concomitant]
     Active Substance: BUPIVACAINE HYDROCHLORIDE
     Dosage: 4 ML (0.25 % 4 ML/HR 275 ML) DAILY
     Route: 058

REACTIONS (2)
  - Blood bilirubin increased [Recovered/Resolved]
  - Jaundice [Recovered/Resolved]

NARRATIVE: CASE EVENT DATE: 20190204
